FAERS Safety Report 8307639-1 (Version None)
Quarter: 2012Q2

REPORT INFORMATION
  Report Type: 
  Country: None (occurrence: None)
  Receive Date: 20120424
  Receipt Date: 20120416
  Transmission Date: 20120825
  Serious: Yes (Other)
  Sender: FDA-Public Use
  Company Number: US-JNJFOC-20111104015

PATIENT
  Sex: Female

DRUGS (7)
  1. TOPAMAX [Suspect]
     Indication: MIGRAINE
     Route: 048
  2. COMBIVENT [Concomitant]
     Indication: ANTASTHMATIC DRUG LEVEL
     Route: 065
  3. CYCLOBENZAPRINE [Concomitant]
     Indication: HEADACHE
     Route: 065
  4. AMOXICILLIN [Concomitant]
     Indication: RESPIRATORY TRACT INFECTION
     Route: 048
  5. KETEK [Concomitant]
     Indication: RESPIRATORY TRACT INFECTION
     Route: 065
  6. ALBUTEROL [Concomitant]
     Indication: ASTHMA
     Route: 065
  7. EFFEXOR XR [Concomitant]
     Indication: DEPRESSION

REACTIONS (4)
  - MATERNAL EXPOSURE DURING PREGNANCY [None]
  - ANXIETY [None]
  - STRESS [None]
  - POSTPARTUM DEPRESSION [None]
